FAERS Safety Report 21326571 (Version 2)
Quarter: 2022Q3

REPORT INFORMATION
  Report Type: Spontaneous
  Country: AM (occurrence: None)
  Receive Date: 20220913
  Receipt Date: 20220921
  Transmission Date: 20221026
  Serious: Yes (Death, Hospitalization)
  Sender: FDA-Public Use
  Company Number: AM-ROCHE-3173283

PATIENT
  Age: 72 Year
  Sex: Male

DRUGS (2)
  1. OCREVUS [Suspect]
     Active Substance: OCRELIZUMAB
     Indication: Multiple sclerosis
     Route: 042
     Dates: start: 202102
  2. OCREVUS [Suspect]
     Active Substance: OCRELIZUMAB
     Dosage: TREATMENT LAST 2.5 YEARS
     Route: 042
     Dates: end: 20220520

REACTIONS (4)
  - Injury [Fatal]
  - Subdural haematoma [Unknown]
  - Fall [Unknown]
  - Head injury [Unknown]

NARRATIVE: CASE EVENT DATE: 20220801
